FAERS Safety Report 9198440 (Version 1)
Quarter: 2013Q1

REPORT INFORMATION
  Report Type: Spontaneous
  Country: US (occurrence: None)
  Receive Date: 20130327
  Receipt Date: 20130327
  Transmission Date: 20140127
  Serious: Yes (Other)
  Sender: FDA-Public Use
  Company Number: None

PATIENT
  Age: 50 Year
  Sex: Female
  Weight: 65.3 kg

DRUGS (1)
  1. VANCOMYCIN, 5 GRAMS, HOSPIRA [Suspect]
     Indication: ABSCESS
     Dosage: 1GM EVERY 12 HOURS IV
     Route: 042
     Dates: start: 20130227, end: 20130308

REACTIONS (1)
  - Skin exfoliation [None]
